FAERS Safety Report 13338895 (Version 6)
Quarter: 2017Q3

REPORT INFORMATION
  Report Type: Spontaneous
  Country: US (occurrence: US)
  Receive Date: 20170315
  Receipt Date: 20170804
  Transmission Date: 20171127
  Serious: Yes (Congenital Anomaly, Other)
  Sender: FDA-Public Use
  Company Number: PHEH2017US007392

PATIENT
  Sex: Male

DRUGS (2)
  1. ZOFRAN [Suspect]
     Active Substance: ONDANSETRON HYDROCHLORIDE
     Indication: FOETAL EXPOSURE DURING PREGNANCY
     Route: 064
  2. ONDANSETRON. [Suspect]
     Active Substance: ONDANSETRON
     Indication: FOETAL EXPOSURE DURING PREGNANCY
     Dosage: MOTHER^S DOSE: 4 MG, UNK
     Route: 064

REACTIONS (15)
  - Dacryostenosis congenital [Unknown]
  - Hyperbilirubinaemia neonatal [Unknown]
  - Foetal exposure during pregnancy [Unknown]
  - Ear infection [Unknown]
  - Dermatitis atopic [Unknown]
  - Poor feeding infant [Unknown]
  - Asthma [Unknown]
  - Conductive deafness [Unknown]
  - Otorrhoea [Unknown]
  - Poor weight gain neonatal [Unknown]
  - Upper respiratory tract infection [Unknown]
  - Acne infantile [Unknown]
  - Otitis media acute [Unknown]
  - Arthropod bite [Unknown]
  - Cleft lip and palate [Recovering/Resolving]
